FAERS Safety Report 9349666 (Version 3)
Quarter: 2014Q1

REPORT INFORMATION
  Report Type: Spontaneous
  Country: US (occurrence: US)
  Receive Date: 20130614
  Receipt Date: 20140212
  Transmission Date: 20141002
  Serious: Yes (Hospitalization)
  Sender: FDA-Public Use
  Company Number: US-B.I. PHARMACEUTICALS,INC./RIDGEFIELD-2013-BI-16565BP

PATIENT
  Sex: Female
  Weight: 86.18 kg

DRUGS (18)
  1. PRADAXA [Suspect]
     Indication: CEREBROVASCULAR ACCIDENT PROPHYLAXIS
     Dosage: 300 MG
     Route: 048
     Dates: start: 20110411, end: 20110609
  2. PRADAXA [Suspect]
     Indication: THROMBOSIS PROPHYLAXIS
  3. PRADAXA [Suspect]
     Indication: ATRIAL FIBRILLATION
  4. LYRICA [Concomitant]
  5. HYDROCODONE-ACETAMINOPHEN [Concomitant]
  6. APIDRA SOLOSTAR [Concomitant]
  7. LEVOTHYROXINE [Concomitant]
     Indication: HYPOTHYROIDISM
  8. CARVEDILOL [Concomitant]
  9. METOLAZONE [Concomitant]
  10. DIGOXIN [Concomitant]
  11. LOSARTAN [Concomitant]
  12. LIPITOR [Concomitant]
  13. POTASSIUM CL. [Concomitant]
  14. FLUOXETINE [Concomitant]
  15. BUMETANIDE [Concomitant]
  16. LANTUS SOLOSTAR [Concomitant]
  17. ASPIRIN [Concomitant]
  18. PROTONIX [Concomitant]

REACTIONS (4)
  - Lower gastrointestinal haemorrhage [Recovered/Resolved]
  - Myocardial infarction [Unknown]
  - Shock haemorrhagic [Unknown]
  - Haemorrhagic anaemia [Unknown]
